FAERS Safety Report 9032963 (Version 3)
Quarter: 2013Q3

REPORT INFORMATION
  Report Type: Spontaneous
  Country: US (occurrence: None)
  Receive Date: 20130110
  Receipt Date: 20130815
  Transmission Date: 20140515
  Serious: Yes (Death, Hospitalization, Other)
  Sender: FDA-Public Use
  Company Number: ADR-2012-01869

PATIENT
  Sex: Male

DRUGS (2)
  1. LIORESAL [Suspect]
     Indication: MUSCLE SPASTICITY
  2. LIORESAL [Suspect]
     Indication: MUSCLE SPASTICITY

REACTIONS (6)
  - Pneumonia [None]
  - Urinary tract infection [None]
  - Respiratory failure [None]
  - Mental status changes [None]
  - Pain [None]
  - Pruritus [None]
